FAERS Safety Report 11037850 (Version 1)
Quarter: 2015Q2

REPORT INFORMATION
  Report Type: Spontaneous
  Country: FR (occurrence: FR)
  Receive Date: 20150416
  Receipt Date: 20150416
  Transmission Date: 20150821
  Serious: Yes (Hospitalization, Other)
  Sender: FDA-Public Use
  Company Number: FR-ASTRAZENECA-2015SE20320

PATIENT
  Age: 42 Year
  Sex: Male
  Weight: 86 kg

DRUGS (7)
  1. SODIUM HYALURONATE [Suspect]
     Active Substance: HYALURONATE SODIUM
     Dosage: CONTAINED IN 5 ML OF VOLUMA GEL (MEDICAL DEVICE), 100 MG ONCE/SINGLE ADMINISTRATION
     Route: 058
     Dates: start: 20150211, end: 20150211
  2. XYLOCAINE [Suspect]
     Active Substance: LIDOCAINE HYDROCHLORIDE
     Dosage: 10 MG/ML, 10 MG ONCE/SINGLE ADMINISTRATION
     Route: 058
     Dates: start: 20150211, end: 20150211
  3. XYLOCAINE [Suspect]
     Active Substance: LIDOCAINE HYDROCHLORIDE
     Dosage: CONTAINED IN 10 ML OF VOLIFT (MEDICAL DEVICE), 30 MG ONCE/SINGLE ADMINISTRATION
     Route: 058
     Dates: start: 20150211, end: 20150211
  4. XYLOCAINE [Suspect]
     Active Substance: LIDOCAINE HYDROCHLORIDE
     Dosage: CONTAINED IN 5 ML OF VOLUMA (MEDICAL DEVICE), 15 MG ONCE/SINGLE ADMINISTRATION
     Route: 058
     Dates: start: 20150211, end: 20150211
  5. LIDOCAINE HYDROCHLORIDE. [Suspect]
     Active Substance: LIDOCAINE HYDROCHLORIDE
     Dosage: CONTAINED IN 5 ML OF VOLUMA (MEDICAL DEVICE), 15 MG ONCE/SINGLE ADMINISTRATION
     Route: 058
     Dates: start: 20150211, end: 20150211
  6. SODIUM HYALURONATE [Suspect]
     Active Substance: HYALURONATE SODIUM
     Dosage: CONTAINED IN 10 ML OF VOLIFT (MEDICAL DEVICE), 175 MG ONCE/SINGLE ADMINISTRATION
     Route: 058
     Dates: start: 20150211, end: 20150211
  7. LIDOCAINE HYDROCHLORIDE. [Suspect]
     Active Substance: LIDOCAINE HYDROCHLORIDE
     Dosage: CONTAINED IN 10 ML OF VOLIFT (MEDICAL DEVICE), 30 MG ONCE/SINGLE ADMINISTRATION
     Route: 058
     Dates: start: 20150211, end: 20150211

REACTIONS (3)
  - Headache [Not Recovered/Not Resolved]
  - Nuclear magnetic resonance imaging brain abnormal [Not Recovered/Not Resolved]
  - Cerebral ischaemia [Unknown]

NARRATIVE: CASE EVENT DATE: 20150211
